FAERS Safety Report 8668843 (Version 3)
Quarter: 2013Q4

REPORT INFORMATION
  Report Type: Spontaneous
  Country: CN (occurrence: CN)
  Receive Date: 20120717
  Receipt Date: 20131106
  Transmission Date: 20140711
  Serious: Yes (Hospitalization)
  Sender: FDA-Public Use
  Company Number: PHHY2012CN059638

PATIENT
  Age: 59 Year
  Sex: Male
  Weight: 65 kg

DRUGS (4)
  1. SANDOSTATIN LAR [Suspect]
     Indication: PANCREATIC CARCINOMA
     Dosage: UNK
     Route: 030
  2. SANDOSTATIN LAR [Suspect]
     Dosage: UNK
     Route: 030
  3. SANDOSTATIN LAR [Suspect]
     Dosage: UNK
     Route: 030
  4. SANDOSTATIN LAR [Suspect]
     Dosage: 20 MG, QMO
     Route: 030
     Dates: start: 20120629, end: 20120629

REACTIONS (14)
  - Blood pressure decreased [Recovering/Resolving]
  - Injection site induration [Recovering/Resolving]
  - Haemorrhage subcutaneous [Recovering/Resolving]
  - C-reactive protein increased [Recovering/Resolving]
  - Haemoglobin decreased [Recovering/Resolving]
  - Contusion [Recovering/Resolving]
  - Arthralgia [Recovering/Resolving]
  - Joint swelling [Recovering/Resolving]
  - Local swelling [Recovering/Resolving]
  - Oedema peripheral [Recovering/Resolving]
  - Erythema [Unknown]
  - Effusion [Recovering/Resolving]
  - Pyrexia [Recovering/Resolving]
  - Rash macular [Recovering/Resolving]
